FAERS Safety Report 7575405-0 (Version None)
Quarter: 2011Q2

REPORT INFORMATION
  Report Type: 
  Country: None (occurrence: None)
  Receive Date: 20110627
  Receipt Date: 20110616
  Transmission Date: 20111010
  Serious: Yes (Other)
  Sender: FDA-Public Use
  Company Number: US-PFIZER INC-2011133350

PATIENT
  Sex: Female
  Weight: 52.154 kg

DRUGS (2)
  1. TOVIAZ [Suspect]
     Indication: HYPERTONIC BLADDER
     Dosage: 4 MG, DAILY
     Dates: start: 20110608, end: 20110608
  2. VESICARE [Suspect]

REACTIONS (4)
  - BLADDER SPASM [None]
  - LIP SWELLING [None]
  - SWELLING FACE [None]
  - DIZZINESS [None]
